FAERS Safety Report 9011986 (Version 1)
Quarter: 2012Q4

REPORT INFORMATION
  Report Type: Spontaneous
  Country: IN (occurrence: None)
  Receive Date: 20121228
  Receipt Date: 20121228
  Transmission Date: 20130627
  Serious: Yes (Other)
  Sender: FDA-Public Use
  Company Number: AUR-APL-2012-05574

PATIENT
  Age: 60 Year
  Sex: Male

DRUGS (9)
  1. PHENYTOIN (PHENYTOIN) [Suspect]
     Indication: BIPOLAR DISORDER
  2. LAMOTRIGINE (LAMOTRIGINE) [Suspect]
  3. LEVETIRACETAM (LEVETIRACETAM) [Suspect]
  4. QUETIAPINE (QUETIAPINE) (QUETIAPINE) [Suspect]
  5. TOPIRAMATE (TOPIRAMATE) [Suspect]
  6. DIVALPROEX [Suspect]
  7. OLANZAPINE (OLANZAPINE) [Suspect]
  8. CARBAMAZEPINE (CARBAMAZEPINE) CHEWABLE TABLET [Suspect]
  9. LITHIUM (LITHIUM) UNKNOWN [Suspect]

REACTIONS (7)
  - Tremor [None]
  - Weight increased [None]
  - Stevens-Johnson syndrome [None]
  - Hypertension [None]
  - Therapeutic response decreased [None]
  - Drug intolerance [None]
  - Drug ineffective [None]
